FAERS Safety Report 16305732 (Version 1)
Quarter: 2019Q2

REPORT INFORMATION
  Report Type: Spontaneous
  Country: US (occurrence: US)
  Receive Date: 20190513
  Receipt Date: 20190513
  Transmission Date: 20190711
  Serious: Yes (Hospitalization)
  Sender: FDA-Public Use
  Company Number: US-BAYER-2019-089631

PATIENT
  Age: 48 Year
  Sex: Female

DRUGS (1)
  1. COPPERTONE DRY SPF 10 [Suspect]
     Active Substance: HOMOSALATE\OCTINOXATE\OCTISALATE\OXYBENZONE
     Indication: THERAPEUTIC SKIN CARE TOPICAL
     Route: 061

REACTIONS (1)
  - Sunburn [Unknown]
